FAERS Safety Report 5061576-7 (Version None)
Quarter: 2006Q3

REPORT INFORMATION
  Report Type: 
  Country: None (occurrence: None)
  Receive Date: 20060721
  Receipt Date: 20060714
  Transmission Date: 20061208
  Serious: Yes (Hospitalization)
  Sender: FDA-Public Use
  Company Number: S06-USA-02768-01

PATIENT
  Sex: 0

DRUGS (2)
  1. LEXAPRO [Suspect]
  2. DEMEROL [Suspect]
     Indication: ABDOMINAL PAIN UPPER

REACTIONS (3)
  - ABDOMINAL PAIN UPPER [None]
  - BODY TEMPERATURE INCREASED [None]
  - DRUG INTERACTION [None]
